FAERS Safety Report 19940445 (Version 5)
Quarter: 2022Q2

REPORT INFORMATION
  Report Type: Spontaneous
  Country: US (occurrence: US)
  Receive Date: 20211012
  Receipt Date: 20220420
  Transmission Date: 20220720
  Serious: Yes (Disabling, Other)
  Sender: FDA-Public Use
  Company Number: US-AUROBINDO-AUR-APL-2021-041024

PATIENT
  Age: 88 Year
  Sex: Male

DRUGS (3)
  1. AMIODARONE HYDROCHLORIDE [Suspect]
     Active Substance: AMIODARONE HYDROCHLORIDE
     Indication: Product used for unknown indication
     Dosage: 100 MILLIGRAM EVERY OTHER DAY
     Route: 048
  2. ENTRESTO [Suspect]
     Active Substance: SACUBITRIL\VALSARTAN
     Indication: Product used for unknown indication
     Dosage: 24/26 MG TWICE A DAY
     Route: 048
  3. LASIX [Concomitant]
     Active Substance: FUROSEMIDE
     Indication: Product used for unknown indication
     Dosage: UNK
     Route: 065

REACTIONS (14)
  - Pain in extremity [Unknown]
  - Diabetic neuropathy [Unknown]
  - Squamous cell carcinoma [Recovered/Resolved]
  - Blood glucose increased [Recovered/Resolved]
  - Cardiac failure congestive [Recovered/Resolved]
  - Diabetes mellitus [Recovered/Resolved]
  - Cardiomyopathy [Recovered/Resolved]
  - Angiopathy [Recovered/Resolved]
  - Hypotension [Unknown]
  - Dizziness [Unknown]
  - Dysstasia [Unknown]
  - Cough [Unknown]
  - COVID-19 [Recovering/Resolving]
  - Wrong technique in product usage process [Unknown]

NARRATIVE: CASE EVENT DATE: 20210801
